FAERS Safety Report 10152860 (Version 4)
Quarter: 2014Q2

REPORT INFORMATION
  Report Type: Spontaneous
  Country: US (occurrence: US)
  Receive Date: 20140505
  Receipt Date: 20140617
  Transmission Date: 20141212
  Serious: Yes (Hospitalization)
  Sender: FDA-Public Use
  Company Number: US-ACTELION-A-NJ2014-98148

PATIENT
  Age: 73 Year
  Sex: Male

DRUGS (8)
  1. OPSUMIT [Suspect]
     Indication: PULMONARY ARTERIAL HYPERTENSION
     Dosage: 10 MG, QD
     Route: 048
     Dates: start: 20140325
  2. TRACLEER [Suspect]
     Indication: PULMONARY ARTERIAL HYPERTENSION
     Dosage: UNK
     Route: 048
     Dates: start: 2013, end: 2014
  3. TYVASO [Suspect]
     Indication: PULMONARY ARTERIAL HYPERTENSION
     Dosage: UNK, QD
     Dates: start: 2014
  4. COUMADIN [Concomitant]
     Dosage: 5 MG, QD
     Dates: end: 20140421
  5. LASIX [Concomitant]
     Dosage: 40 MG, QD
     Dates: start: 201405
  6. CARDIZEM CD [Concomitant]
     Dosage: 120 MG, BID
  7. INSULIN DETEMIR [Concomitant]
     Dosage: UNK
  8. NOVOLOG [Concomitant]
     Dosage: UNK

REACTIONS (11)
  - Gastritis [Unknown]
  - Gastric ulcer haemorrhage [Recovering/Resolving]
  - Transfusion [Unknown]
  - Rectal haemorrhage [Recovered/Resolved]
  - Dyspnoea [Recovering/Resolving]
  - Fluid overload [Recovering/Resolving]
  - Pulmonary arterial hypertension [Unknown]
  - Pneumonia [Unknown]
  - Oxygen saturation decreased [Unknown]
  - Oedema peripheral [Recovering/Resolving]
  - Pulmonary arterial pressure increased [Not Recovered/Not Resolved]
